FAERS Safety Report 8119282-8 (Version None)
Quarter: 2012Q1

REPORT INFORMATION
  Report Type: 
  Country: None (occurrence: None)
  Receive Date: 20120207
  Receipt Date: 20120127
  Transmission Date: 20120608
  Serious: No
  Sender: FDA-Public Use
  Company Number: US-ELI_LILLY_AND_COMPANY-US201201009188

PATIENT
  Sex: Female

DRUGS (3)
  1. TENORETIC 100 [Concomitant]
  2. NAPROSYN                                /USA/ [Concomitant]
  3. CYMBALTA [Suspect]
     Indication: FIBROMYALGIA
     Dosage: 60 MG, QD
     Dates: start: 20110701, end: 20120104

REACTIONS (19)
  - BLOOD GLUCOSE DECREASED [None]
  - HEPATIC ENZYME INCREASED [None]
  - HEADACHE [None]
  - DRUG WITHDRAWAL SYNDROME [None]
  - ANGER [None]
  - OROPHARYNGEAL PAIN [None]
  - PULSE PRESSURE INCREASED [None]
  - PARAESTHESIA [None]
  - FOOD CRAVING [None]
  - BLOOD GLUCOSE INCREASED [None]
  - WEIGHT INCREASED [None]
  - PRURITUS [None]
  - DYSPNOEA [None]
  - MUSCULOSKELETAL PAIN [None]
  - NASOPHARYNGITIS [None]
  - COUGH [None]
  - FEELING ABNORMAL [None]
  - RHINORRHOEA [None]
  - CHEST DISCOMFORT [None]
